FAERS Safety Report 6424970-5 (Version None)
Quarter: 2009Q4

REPORT INFORMATION
  Report Type: 
  Country: None (occurrence: None)
  Receive Date: 20091103
  Receipt Date: 20091029
  Transmission Date: 20100525
  Serious: Yes (Hospitalization)
  Sender: FDA-Public Use
  Company Number: DE-ELI_LILLY_AND_COMPANY-DE200910007683

PATIENT
  Sex: Female

DRUGS (4)
  1. BYETTA [Suspect]
     Indication: TYPE 2 DIABETES MELLITUS
     Dosage: 10 UG, UNK
     Route: 058
     Dates: start: 20090701
  2. CORTISONE [Concomitant]
  3. ANTIHYPERTENSIVES [Concomitant]
  4. THYROID THERAPY [Concomitant]

REACTIONS (1)
  - LOCALISED INFECTION [None]
